FAERS Safety Report 18004437 (Version 1)
Quarter: 2020Q3

REPORT INFORMATION
  Report Type: Spontaneous
  Country: BR (occurrence: BR)
  Receive Date: 20200710
  Receipt Date: 20200710
  Transmission Date: 20201103
  Serious: Yes (Hospitalization, Other)
  Sender: FDA-Public Use
  Company Number: BR-ABBVIE-20K-020-3470944-00

PATIENT
  Age: 49 Year
  Sex: Male
  Weight: 91 kg

DRUGS (6)
  1. PANTOPRAZOLE [Concomitant]
     Active Substance: PANTOPRAZOLE
     Indication: PROPHYLAXIS
  2. PANTOPRAZOLE [Concomitant]
     Active Substance: PANTOPRAZOLE
     Indication: GASTRITIS
     Dosage: IN THE MORNING
     Route: 048
  3. HUMIRA [Suspect]
     Active Substance: ADALIMUMAB
     Route: 058
  4. HUMIRA [Suspect]
     Active Substance: ADALIMUMAB
     Indication: ANKYLOSING SPONDYLITIS
     Route: 058
     Dates: start: 20150104, end: 201810
  5. BISOPROLOL FUMARATE. [Concomitant]
     Active Substance: BISOPROLOL FUMARATE
     Indication: HEART RATE
     Dosage: AT NIGHT
     Route: 048
  6. VITAMIN D3 [Concomitant]
     Active Substance: CHOLECALCIFEROL
     Indication: VITAMIN D DEFICIENCY
     Dosage: IN THE THURSDAY
     Route: 048
     Dates: start: 2015

REACTIONS (20)
  - Gait disturbance [Unknown]
  - Arthralgia [Not Recovered/Not Resolved]
  - Pneumonia [Recovered/Resolved]
  - Walking aid user [Unknown]
  - Cough [Recovered/Resolved]
  - Immunodeficiency [Recovered/Resolved]
  - Venous occlusion [Unknown]
  - Arthralgia [Not Recovered/Not Resolved]
  - Gastritis [Unknown]
  - Burning sensation [Unknown]
  - Coordination abnormal [Unknown]
  - Skin fissures [Unknown]
  - H1N1 influenza [Recovered/Resolved]
  - Dyspnoea [Recovered/Resolved]
  - Bronchitis [Recovered/Resolved]
  - Fall [Unknown]
  - Arthropathy [Unknown]
  - Chest discomfort [Unknown]
  - Bone pain [Unknown]
  - Spinal pain [Unknown]

NARRATIVE: CASE EVENT DATE: 201611
